FAERS Safety Report 18732001 (Version 1)
Quarter: 2021Q1

REPORT INFORMATION
  Report Type: Other
  Country: ER (occurrence: ER)
  Receive Date: 20210112
  Receipt Date: 20210112
  Transmission Date: 20210419
  Serious: Yes (Disabling, Other)
  Sender: FDA-Public Use
  Company Number: ER-NEOPHARMA INC-000371

PATIENT
  Age: 77 Year
  Sex: Female

DRUGS (1)
  1. AMOXICILLIN. [Suspect]
     Active Substance: AMOXICILLIN
     Indication: PREMEDICATION

REACTIONS (10)
  - Chest injury [Unknown]
  - Limb injury [Unknown]
  - Prescribed overdose [Unknown]
  - Skin abrasion [Unknown]
  - Chest pain [Unknown]
  - Seizure [Unknown]
  - Insomnia [Unknown]
  - Deafness [Unknown]
  - Road traffic accident [Unknown]
  - Stress [Unknown]
